FAERS Safety Report 8135253-X (Version None)
Quarter: 2012Q1

REPORT INFORMATION
  Report Type: 
  Country: None (occurrence: None)
  Receive Date: 20120210
  Receipt Date: 20120131
  Transmission Date: 20120608
  Serious: Yes (Hospitalization)
  Sender: FDA-Public Use
  Company Number: 2012PL000004

PATIENT
  Age: 67 Year
  Sex: Female
  Weight: 50.8029 kg

DRUGS (8)
  1. SIMVASTATIN [Concomitant]
  2. CALCIUM [Concomitant]
  3. OMEPRAZOLE [Concomitant]
  4. THYROID [Concomitant]
  5. LOTRONEX [Suspect]
     Indication: IRRITABLE BOWEL SYNDROME
     Dosage: 1 MG;QD
     Dates: start: 20090611, end: 20111227
  6. ALENDRONATE SODIUM [Concomitant]
  7. VALIUM [Concomitant]
  8. ESTRADIOL [Concomitant]

REACTIONS (1)
  - COLITIS ISCHAEMIC [None]
